FAERS Safety Report 7929642-3 (Version None)
Quarter: 2011Q4

REPORT INFORMATION
  Report Type: 
  Country: None (occurrence: None)
  Receive Date: 20111121
  Receipt Date: 20111110
  Transmission Date: 20120403
  Serious: Yes (Death)
  Sender: FDA-Public Use
  Company Number: US-JNJFOC-20111106443

PATIENT
  Age: 31 Year
  Sex: Male

DRUGS (9)
  1. FENTANYL-100 [Suspect]
     Indication: PRODUCT USED FOR UNKNOWN INDICATION
     Route: 048
  2. METHADONE HCL [Suspect]
     Indication: PRODUCT USED FOR UNKNOWN INDICATION
     Route: 065
  3. TETRAHYDROCANNABINOL [Suspect]
     Indication: PRODUCT USED FOR UNKNOWN INDICATION
  4. AMPHETAMINE SULFATE [Suspect]
     Indication: PRODUCT USED FOR UNKNOWN INDICATION
     Route: 065
  5. CAFFEINE CITRATE [Suspect]
     Indication: PRODUCT USED FOR UNKNOWN INDICATION
     Route: 065
  6. BENZOYLECGONINE [Suspect]
     Indication: PRODUCT USED FOR UNKNOWN INDICATION
     Route: 065
  7. MORPHINE [Suspect]
     Indication: PRODUCT USED FOR UNKNOWN INDICATION
     Route: 065
  8. METHAMPHETAMINE HYDROCHLORIDE [Suspect]
     Indication: PRODUCT USED FOR UNKNOWN INDICATION
     Route: 065
  9. COCAINE [Suspect]
     Indication: PRODUCT USED FOR UNKNOWN INDICATION
     Route: 065

REACTIONS (4)
  - TOXICITY TO VARIOUS AGENTS [None]
  - ASPHYXIA [None]
  - INTENTIONAL DRUG MISUSE [None]
  - INCORRECT ROUTE OF DRUG ADMINISTRATION [None]
